FAERS Safety Report 15190791 (Version 2)
Quarter: 2019Q1

REPORT INFORMATION
  Report Type: Spontaneous
  Country: BE (occurrence: BE)
  Receive Date: 20180724
  Receipt Date: 20190328
  Transmission Date: 20190417
  Serious: Yes (Life-Threatening, Hospitalization, Other)
  Sender: FDA-Public Use
  Company Number: PHHY2018BE052079

PATIENT
  Age: 42 Year
  Sex: Male
  Weight: 88 kg

DRUGS (16)
  1. GEMCITABINE HYDROCHLORIDE. [Suspect]
     Active Substance: GEMCITABINE HYDROCHLORIDE
     Indication: NON-SMALL CELL LUNG CANCER
     Dosage: UNK
     Route: 042
  2. AVELUMAB [Suspect]
     Active Substance: AVELUMAB
     Dosage: 970 MG, CYCLIC
     Route: 042
     Dates: start: 20160411
  3. TEMESTA [Concomitant]
     Indication: INSOMNIA
     Dosage: UNK
     Route: 065
  4. CARBOPLATIN. [Suspect]
     Active Substance: CARBOPLATIN
     Indication: NON-SMALL CELL LUNG CANCER
     Dosage: UNK
     Route: 042
  5. AVELUMAB [Suspect]
     Active Substance: AVELUMAB
     Dosage: 970 MG, CYCLIC
     Route: 042
     Dates: start: 20160411
  6. QVAR [Concomitant]
     Active Substance: BECLOMETHASONE DIPROPIONATE
     Indication: COUGH
     Route: 065
  7. AVELUMAB [Suspect]
     Active Substance: AVELUMAB
     Indication: NON-SMALL CELL LUNG CANCER
     Dosage: 970 MG, CYCLIC
     Route: 042
     Dates: start: 20160411
  8. AVELUMAB [Suspect]
     Active Substance: AVELUMAB
     Dosage: 970 MG, CYCLIC
     Route: 042
     Dates: start: 20160411
  9. DAFALGAN [Concomitant]
     Active Substance: ACETAMINOPHEN
     Indication: BONE PAIN
     Dosage: UNK
     Route: 065
  10. MOVICOL [Concomitant]
     Active Substance: POLYETHYLENE GLYCOL 3350\POTASSIUM CHLORIDE\SODIUM BICARBONATE\SODIUM CHLORIDE
     Indication: CONSTIPATION
     Dosage: UNK
     Route: 065
  11. AVELUMAB [Suspect]
     Active Substance: AVELUMAB
     Dosage: 900 MG, CYCLIC
     Route: 042
     Dates: start: 20160620
  12. METHADONE [Concomitant]
     Active Substance: METHADONE HYDROCHLORIDE
     Indication: BONE PAIN
     Route: 065
  13. VALIUM [Concomitant]
     Active Substance: DIAZEPAM
     Indication: BONE PAIN
     Dosage: UNK
     Route: 065
  14. AVELUMAB [Suspect]
     Active Substance: AVELUMAB
     Dosage: 970 MG, CYCLIC
     Route: 042
     Dates: start: 20160411
  15. NEPHRON [Concomitant]
     Indication: BONE PAIN
     Dosage: UNK
     Route: 065
  16. REDOMEX [Concomitant]
     Active Substance: AMITRIPTYLINE HYDROCHLORIDE
     Indication: BONE PAIN
     Dosage: UNK
     Route: 065

REACTIONS (6)
  - Febrile neutropenia [Recovered/Resolved]
  - Thrombocytopenia [Recovered/Resolved]
  - Sepsis [Recovered/Resolved]
  - Leukopenia [Recovered/Resolved]
  - Off label use [Recovered/Resolved]
  - Pneumonia [Recovered/Resolved]

NARRATIVE: CASE EVENT DATE: 20160801
